FAERS Safety Report 7500558-X (Version None)
Quarter: 2011Q2

REPORT INFORMATION
  Report Type: 
  Country: None (occurrence: None)
  Receive Date: 20110524
  Receipt Date: 20110519
  Transmission Date: 20111010
  Serious: No
  Sender: FDA-Public Use
  Company Number: US-PFIZER INC-2011075453

PATIENT
  Sex: Female
  Weight: 54.422 kg

DRUGS (5)
  1. ASPIRIN [Concomitant]
     Dosage: 81 MG, 1X/DAY
  2. LIPITOR [Suspect]
     Indication: BLOOD CHOLESTEROL INCREASED
     Dosage: 10 MG, 1X/DAY
     Route: 048
     Dates: start: 19990101
  3. ENALAPRIL [Concomitant]
     Indication: BLOOD CHOLESTEROL INCREASED
  4. AMLODIPINE BESYLATE [Suspect]
     Indication: HYPERTENSION
     Dosage: 10 MG, 1X/DAY
  5. ENALAPRIL [Concomitant]
     Indication: HYPERTENSION
     Dosage: 10 MG, 2X/DAY

REACTIONS (6)
  - CONSTIPATION [None]
  - PRURITUS [None]
  - DYSURIA [None]
  - ALOPECIA [None]
  - NAUSEA [None]
  - SKIN DISORDER [None]
